FAERS Safety Report 25315766 (Version 2)
Quarter: 2025Q2

REPORT INFORMATION
  Report Type: Report from Study
  Country: FR (occurrence: FR)
  Receive Date: 20250515
  Receipt Date: 20250518
  Transmission Date: 20250716
  Serious: Yes (Hospitalization)
  Sender: ABBVIE
  Company Number: FR-ABBVIE-6280343

PATIENT
  Age: 73 Year
  Sex: Male

DRUGS (1)
  1. FOSCARBIDOPA\FOSLEVODOPA [Suspect]
     Active Substance: FOSCARBIDOPA\FOSLEVODOPA
     Indication: Product used for unknown indication
     Route: 058
     Dates: start: 20241202, end: 202505

REACTIONS (4)
  - Aggression [Recovering/Resolving]
  - Verbal abuse [Unknown]
  - Persecutory delusion [Not Recovered/Not Resolved]
  - Behaviour disorder [Recovering/Resolving]

NARRATIVE: CASE EVENT DATE: 20250101
